FAERS Safety Report 7916796-8 (Version None)
Quarter: 2011Q4

REPORT INFORMATION
  Report Type: 
  Country: None (occurrence: None)
  Receive Date: 20111114
  Receipt Date: 20111104
  Transmission Date: 20120403
  Serious: Yes (Disabling)
  Sender: FDA-Public Use
  Company Number: 2011-00969

PATIENT
  Age: 8 Decade
  Sex: Female

DRUGS (3)
  1. SIMVASTATIN [Suspect]
     Indication: PRODUCT USED FOR UNKNOWN INDICATION
     Dosage: 40 MG (40 MG, 1 IN 1 D, ORAL
     Route: 048
     Dates: start: 20070101, end: 20110726
  2. ALENDRONIC ACID (ALENDRONATE) [Concomitant]
  3. FELODIPINE [Concomitant]

REACTIONS (2)
  - NO THERAPEUTIC RESPONSE [None]
  - HYPOKALAEMIA [None]
